FAERS Safety Report 13134925 (Version 1)
Quarter: 2017Q1

REPORT INFORMATION
  Report Type: Spontaneous
  Country: US (occurrence: US)
  Receive Date: 20170120
  Receipt Date: 20170120
  Transmission Date: 20170428
  Serious: Yes (Other)
  Sender: FDA-Public Use
  Company Number: US-TEVA-732137ACC

PATIENT
  Age: 26 Year
  Sex: Female
  Weight: 80.81 kg

DRUGS (3)
  1. PARAGARD T 380A [Suspect]
     Active Substance: COPPER
     Indication: CONTRACEPTION
     Dates: start: 20161206
  2. DORYX [Concomitant]
     Active Substance: DOXYCYCLINE HYCLATE
     Indication: ACNE
  3. SPIRONOLACTONE. [Concomitant]
     Active Substance: SPIRONOLACTONE
     Indication: ACNE

REACTIONS (2)
  - Device dislocation [Not Recovered/Not Resolved]
  - Pelvic discomfort [Not Recovered/Not Resolved]

NARRATIVE: CASE EVENT DATE: 20161209
